FAERS Safety Report 5027658-0 (Version None)
Quarter: 2006Q2

REPORT INFORMATION
  Report Type: 
  Country: None (occurrence: None)
  Receive Date: 20060616
  Receipt Date: 20060608
  Transmission Date: 20061013
  Serious: Yes (Hospitalization)
  Sender: FDA-Public Use
  Company Number: FR-JNJFOC-20060602223

PATIENT
  Sex: Female

DRUGS (5)
  1. RISPERDAL [Suspect]
     Indication: SCHIZOPHRENIA
     Route: 048
  2. XANAX [Concomitant]
     Indication: ANXIETY
  3. SEROPRAM [Concomitant]
     Indication: IRRITABILITY
  4. RIVOTRIL [Concomitant]
     Indication: EPILEPSY
  5. LAMICTAL [Concomitant]
     Indication: EPILEPSY

REACTIONS (2)
  - LUNG DISORDER [None]
  - SYNCOPE [None]
